FAERS Safety Report 17862927 (Version 1)
Quarter: 2020Q2

REPORT INFORMATION
  Report Type: Spontaneous
  Country: US (occurrence: US)
  Receive Date: 20200604
  Receipt Date: 20200604
  Transmission Date: 20200714
  Serious: No
  Sender: FDA-Public Use
  Company Number: US-FOUNDATIONCONSUMERHC-2020-US-007452

PATIENT
  Age: 19 Year
  Sex: Female
  Weight: 76.2 kg

DRUGS (2)
  1. PLAN B ONE-STEP [Suspect]
     Active Substance: LEVONORGESTREL
     Indication: POST COITAL CONTRACEPTION
     Dosage: 1.5MG TABLET
     Route: 048
     Dates: start: 20200402, end: 20200402
  2. MIDOL [Concomitant]
     Active Substance: IBUPROFEN

REACTIONS (5)
  - Vaginal haemorrhage [Not Recovered/Not Resolved]
  - Abdominal distension [Not Recovered/Not Resolved]
  - Dysmenorrhoea [Recovered/Resolved]
  - Headache [Recovered/Resolved]
  - Nausea [Unknown]

NARRATIVE: CASE EVENT DATE: 20200406
